FAERS Safety Report 24215119 (Version 4)
Quarter: 2024Q4

REPORT INFORMATION
  Report Type: Spontaneous
  Country: JP (occurrence: JP)
  Receive Date: 20240816
  Receipt Date: 20241019
  Transmission Date: 20250114
  Serious: Yes (Life-Threatening, Hospitalization, Other)
  Sender: ABBVIE
  Company Number: JP-ABBVIE-5878257

PATIENT
  Age: 57 Year
  Sex: Female
  Weight: 52 kg

DRUGS (1)
  1. HUMIRA [Suspect]
     Active Substance: ADALIMUMAB
     Indication: Ankylosing spondylitis
     Route: 058
     Dates: start: 20220506, end: 20240726

REACTIONS (10)
  - Putamen haemorrhage [Not Recovered/Not Resolved]
  - Malaise [Unknown]
  - Nausea [Unknown]
  - Vomiting [Unknown]
  - Hemiplegia [Unknown]
  - Aphasia [Unknown]
  - Unevaluable event [Unknown]
  - Cerebrovascular disorder [Unknown]
  - Blood pressure abnormal [Unknown]
  - Angiopathy [Unknown]

NARRATIVE: CASE EVENT DATE: 20240101
